FAERS Safety Report 13875828 (Version 1)
Quarter: 2017Q3

REPORT INFORMATION
  Report Type: Report from Study
  Country: CN (occurrence: CN)
  Receive Date: 20170817
  Receipt Date: 20170817
  Transmission Date: 20171127
  Serious: Yes (Other)
  Sender: FDA-Public Use
  Company Number: CN-ROCHE-1979928

PATIENT

DRUGS (3)
  1. ASPIRIN. [Concomitant]
     Active Substance: ASPIRIN
     Indication: ISCHAEMIC STROKE
     Dosage: 300 MG 24 HOURS AFTER THROMBOLYSIS)
     Route: 048
  2. ALTEPLASE. [Suspect]
     Active Substance: ALTEPLASE
     Indication: ISCHAEMIC STROKE
     Dosage: 0.6-0.9MG/KG, IN 1 MINUTE, THE REST THROUGH CONSTANT PUMPING IN 60 MINUTES, 10 PERCENT TOTAL
     Route: 042
  3. ASPIRIN. [Concomitant]
     Active Substance: ASPIRIN
     Dosage: 10 DAYS LATER
     Route: 065

REACTIONS (1)
  - Haemorrhage intracranial [Unknown]
